FAERS Safety Report 5189931-5 (Version None)
Quarter: 2006Q4

REPORT INFORMATION
  Report Type: 
  Country: None (occurrence: None)
  Receive Date: 20061215
  Receipt Date: 20061204
  Transmission Date: 20070319
  Serious: Yes (Hospitalization)
  Sender: FDA-Public Use
  Company Number: T200601410

PATIENT
  Age: 66 Year
  Sex: Male

DRUGS (7)
  1. TRAMADOL HCL [Suspect]
     Indication: BACK PAIN
     Dosage: 150 MG, QD; 450 MG, QD
     Dates: end: 20050201
  2. ACETAMINOPHEN [Concomitant]
  3. CLOPIDOGREL [Concomitant]
  4. ACETYLSALICYLICYLATE  (ACETYLSALICYLIC ACID) [Concomitant]
  5. ISOSORBIDE DINITRATE [Concomitant]
  6. METOPROLOL TARTRATE [Concomitant]
  7. SIMVASTATIN [Concomitant]

REACTIONS (22)
  - ABNORMAL BEHAVIOUR [None]
  - ACTIVITIES OF DAILY LIVING IMPAIRED [None]
  - AGITATION [None]
  - AMNESIA [None]
  - APRAXIA [None]
  - CEREBRAL ATROPHY [None]
  - COGNITIVE DISORDER [None]
  - CONFUSIONAL STATE [None]
  - DELIRIUM [None]
  - DEPRESSED MOOD [None]
  - DISORIENTATION [None]
  - DISTURBANCE IN ATTENTION [None]
  - DRUG LEVEL INCREASED [None]
  - FALL [None]
  - HALLUCINATION, AUDITORY [None]
  - ILLUSION [None]
  - INSOMNIA [None]
  - MOVEMENT DISORDER [None]
  - NAUSEA [None]
  - PSYCHIATRIC SYMPTOM [None]
  - SOMNOLENCE [None]
  - SPEECH DISORDER [None]
